FAERS Safety Report 19658317 (Version 2)
Quarter: 2021Q4

REPORT INFORMATION
  Report Type: Spontaneous
  Country: JP (occurrence: None)
  Receive Date: 20210805
  Receipt Date: 20211125
  Transmission Date: 20220303
  Serious: Yes (Hospitalization)
  Sender: FDA-Public Use
  Company Number: JP-ORION CORPORATION ORION PHARMA-ENTC2021-0192

PATIENT
  Age: 79 Year
  Sex: Male

DRUGS (1)
  1. STALEVO [Suspect]
     Active Substance: CARBIDOPA\ENTACAPONE\LEVODOPA
     Indication: Product used for unknown indication
     Dosage: LEVODOPA100MG-CARBIDOPA 10-ENTACAPONE100MG
     Route: 048

REACTIONS (2)
  - Cerebral infarction [Unknown]
  - Dysphagia [Unknown]
